FAERS Safety Report 15100610 (Version 1)
Quarter: 2018Q3

REPORT INFORMATION
  Report Type: Other
  Country: GB (occurrence: GB)
  Receive Date: 20180703
  Receipt Date: 20180703
  Transmission Date: 20181010
  Serious: No
  Sender: FDA-Public Use
  Company Number: GB-LUPIN PHARMACEUTICALS INC.-2018-01979

PATIENT
  Age: 77 Year
  Sex: Female
  Weight: 77 kg

DRUGS (11)
  1. BIMATOPROST. [Concomitant]
     Active Substance: BIMATOPROST
     Indication: PRODUCT USED FOR UNKNOWN INDICATION
     Dosage: 1 DROP, QD, 1 DROP INTO AFFECTED EYE(S) ONCE IN THE EVENING
     Route: 047
     Dates: start: 20171117
  2. BIMATOPROST. [Concomitant]
     Active Substance: BIMATOPROST
     Dosage: 1 DROP, QD, 1 DROP INTO AFFECTED EYE(S) ONCE IN THE EVENING
     Route: 047
     Dates: start: 20171117, end: 20171218
  3. LORATADINE. [Concomitant]
     Active Substance: LORATADINE
     Indication: PRODUCT USED FOR UNKNOWN INDICATION
     Dosage: 1 TABLET ONCE A DAY
     Route: 065
     Dates: start: 20171117
  4. BIMATOPROST. [Concomitant]
     Active Substance: BIMATOPROST
     Dosage: 1 DROP, QD, 1 DROP INTO AFFECTED EYE(S) ONCE IN THE EVENING
     Route: 047
     Dates: start: 20180118
  5. BIMATOPROST. [Concomitant]
     Active Substance: BIMATOPROST
     Dosage: 1 DROP, QD, 1 DROP INTO AFFECTED EYE(S) ONCE IN THE EVENING
     Route: 047
     Dates: start: 20171218, end: 20180102
  6. SIMVASTATIN. [Suspect]
     Active Substance: SIMVASTATIN
     Indication: PRODUCT USED FOR UNKNOWN INDICATION
     Dosage: UNK
     Route: 065
  7. BIMATOPROST. [Concomitant]
     Active Substance: BIMATOPROST
     Dosage: 1 DROP, QD, 1 DROP INTO AFFECTED EYE(S) ONCE IN THE EVENING
     Route: 047
     Dates: start: 20171218
  8. LORATADINE. [Concomitant]
     Active Substance: LORATADINE
     Dosage: 1 TABLET ONCE A DAY
     Route: 065
     Dates: start: 20171117, end: 20171218
  9. LORATADINE. [Concomitant]
     Active Substance: LORATADINE
     Dosage: 1 TABLET ONCE A DAY
     Route: 065
     Dates: start: 20171218, end: 20180102
  10. LORATADINE. [Concomitant]
     Active Substance: LORATADINE
     Dosage: 1 TABLET ONCE A DAY
     Route: 065
     Dates: start: 20180118
  11. LORATADINE. [Concomitant]
     Active Substance: LORATADINE
     Dosage: 1 TABLET ONCE A DAY
     Route: 065
     Dates: start: 20171218

REACTIONS (2)
  - Skin odour abnormal [Unknown]
  - Breath odour [Recovered/Resolved]
